FAERS Safety Report 4340775-3 (Version None)
Quarter: 2004Q2

REPORT INFORMATION
  Report Type: 
  Country: None (occurrence: None)
  Receive Date: 20040413
  Receipt Date: 20040331
  Transmission Date: 20050107
  Serious: Yes (Hospitalization)
  Sender: FDA-Public Use
  Company Number: 2004022127

PATIENT

DRUGS (2)
  1. VFEND [Suspect]
     Indication: ASPERGILLOSIS
  2. EFAVIRENZ (EFAVIRENZ) [Concomitant]

REACTIONS (1)
  - THERAPY NON-RESPONDER [None]
